FAERS Safety Report 5481591-9 (Version None)
Quarter: 2007Q4

REPORT INFORMATION
  Report Type: 
  Country: None (occurrence: None)
  Receive Date: 20071004
  Receipt Date: 20070920
  Transmission Date: 20080405
  Serious: Yes (Life-Threatening, Hospitalization)
  Sender: FDA-Public Use
  Company Number: CLOF-10567

PATIENT
  Age: 67 Year
  Sex: Male
  Weight: 86 kg

DRUGS (17)
  1. CLOFARABINE. MFR: GENZYME [Suspect]
     Indication: ACUTE MYELOID LEUKAEMIA
     Dosage: 30 MG/M2 IV
     Route: 042
     Dates: start: 20070608, end: 20070612
  2. ACETAMINOPHEN [Concomitant]
  3. LOVENOX. MFR: PHARMUKA S.F. [Concomitant]
  4. TOBRAMYCIN [Concomitant]
  5. VANCOMYCIN [Concomitant]
  6. DOUBUTAMINE [Concomitant]
  7. ALBUMIN (HUMAN) [Concomitant]
  8. NOREPINEPHRINE [Concomitant]
  9. MEROPENEM [Concomitant]
  10. OXYGEN [Concomitant]
  11. CASPOFUNGIN [Concomitant]
  12. NEUPOGEN. MFR: AMGEN [Concomitant]
  13. VASOTEC. MFR: MERCK SHARP + DOME [Concomitant]
  14. DIURIL. MFR: MERCK SHARP + DOME [Concomitant]
  15. AMIADARONE [Concomitant]
  16. LEVAQUIN. MFR: ORTHO PHARMACEUTICAL CORPORATION [Concomitant]
  17. VORICONAZOLE [Concomitant]

REACTIONS (21)
  - ADRENAL ADENOMA [None]
  - ATELECTASIS [None]
  - BLOOD PH INCREASED [None]
  - DEEP VEIN THROMBOSIS [None]
  - DEPRESSED LEVEL OF CONSCIOUSNESS [None]
  - GENERAL PHYSICAL HEALTH DETERIORATION [None]
  - HYPOVOLAEMIA [None]
  - LYMPHADENOPATHY [None]
  - LYMPHADENOPATHY MEDIASTINAL [None]
  - NEOPLASM MALIGNANT [None]
  - OEDEMA PERIPHERAL [None]
  - PERIPHERAL ARTERY ANEURYSM [None]
  - PHARYNGEAL ULCERATION [None]
  - PNEUMONIA [None]
  - PNEUMONIA BACTERIAL [None]
  - PSEUDOMONAS INFECTION [None]
  - PULMONARY OEDEMA [None]
  - RENAL CYST [None]
  - RESPIRATORY FAILURE [None]
  - SEPTIC SHOCK [None]
  - VARICOSE VEIN [None]
